FAERS Safety Report 22104811 (Version 1)
Quarter: 2023Q1

REPORT INFORMATION
  Report Type: Report from Study
  Country: GB (occurrence: GB)
  Receive Date: 20230316
  Receipt Date: 20230316
  Transmission Date: 20230418
  Serious: Yes (Other)
  Sender: FDA-Public Use
  Company Number: GB-LEO Pharma-340377

PATIENT
  Age: 55 Year
  Sex: Male

DRUGS (3)
  1. BRODALUMAB [Suspect]
     Active Substance: BRODALUMAB
     Indication: Psoriasis
     Dosage: 210 MG AT WEEKS 0, 1, AND 2 FOLLOWED BY EVERY 2 WEEKS (210 MG,1 IN 1 WK)
     Route: 058
     Dates: start: 20200204
  2. BRODALUMAB [Suspect]
     Active Substance: BRODALUMAB
     Dosage: (210 MG,1 IN 2 WK)
     Route: 058
  3. AMLODIPINE [Concomitant]
     Active Substance: AMLODIPINE BESYLATE
     Indication: Hypertension

REACTIONS (3)
  - Hernia [Not Recovered/Not Resolved]
  - Arthralgia [Unknown]
  - Therapy interrupted [Unknown]
